FAERS Safety Report 6747819-X (Version None)
Quarter: 2010Q2

REPORT INFORMATION
  Report Type: 
  Country: None (occurrence: None)
  Receive Date: 20100528
  Receipt Date: 20100518
  Transmission Date: 20101027
  Serious: Yes (Hospitalization)
  Sender: FDA-Public Use
  Company Number: JP-AMGEN-US397601

PATIENT
  Age: 52 Year
  Sex: Male

DRUGS (8)
  1. ENBREL [Suspect]
     Indication: RHEUMATOID ARTHRITIS
     Route: 058
     Dates: start: 20071101
  2. TACROLIMUS [Suspect]
     Route: 048
     Dates: start: 20070801, end: 20071101
  3. TACROLIMUS [Suspect]
     Route: 048
     Dates: start: 20071101, end: 20080801
  4. TACROLIMUS [Suspect]
     Route: 048
     Dates: start: 20081101, end: 20090101
  5. TACROLIMUS [Suspect]
     Route: 048
     Dates: start: 20090101, end: 20090201
  6. TACROLIMUS [Suspect]
     Route: 048
     Dates: start: 20090201
  7. PREDNISOLONE [Concomitant]
     Route: 048
     Dates: start: 19970101, end: 20090101
  8. PREDNISOLONE [Concomitant]
     Route: 048
     Dates: start: 20090101

REACTIONS (1)
  - ANTISYNTHETASE SYNDROME [None]
